FAERS Safety Report 9725170 (Version 1)
Quarter: 2013Q4

REPORT INFORMATION
  Report Type: Spontaneous
  Country: US (occurrence: US)
  Receive Date: 20131203
  Receipt Date: 20131203
  Transmission Date: 20140711
  Serious: Yes (Hospitalization)
  Sender: FDA-Public Use
  Company Number: US-BEH-2013039101

PATIENT
  Age: 69 Year
  Sex: Female
  Weight: 66 kg

DRUGS (21)
  1. HIZENTRA [Suspect]
     Indication: IMMUNODEFICIENCY COMMON VARIABLE
     Dosage: 3-4 SITES OVER 1-2 HOURS
     Route: 058
     Dates: start: 20131015, end: 20131015
  2. CYMBALTA [Concomitant]
  3. PANTOPRAZOLE [Concomitant]
  4. LASIX [Concomitant]
  5. LIPITOR [Concomitant]
  6. METOPROLOL [Concomitant]
  7. GABAPENTIN [Concomitant]
  8. TAMSULOSIN [Concomitant]
  9. AUGMENTIN [Concomitant]
  10. VITAMIN D [Concomitant]
  11. IRON [Concomitant]
  12. EPI PEN [Concomitant]
  13. PRADAXA [Concomitant]
  14. TYLENOL [Concomitant]
  15. ALBUTEROL [Concomitant]
  16. ATROVENT [Concomitant]
  17. FLOVENT [Concomitant]
  18. K-DUR [Concomitant]
  19. ASPIRIN [Concomitant]
  20. HYDRALAZINE [Concomitant]
  21. TRAZODONE [Concomitant]

REACTIONS (1)
  - Haemoptysis [Unknown]
